FAERS Safety Report 4318051-4 (Version None)
Quarter: 2004Q1

REPORT INFORMATION
  Report Type: 
  Country: None (occurrence: None)
  Receive Date: 20040317
  Receipt Date: 20031017
  Transmission Date: 20041129
  Serious: Yes (Other)
  Sender: FDA-Public Use
  Company Number: PHNU2003DE03747

PATIENT
  Age: 70 Year
  Sex: Male

DRUGS (4)
  1. VOLTAREN EMULGEL ^NOVARTIS^ [Concomitant]
     Indication: ARTHRALGIA
     Route: 061
  2. PROCORUM [Concomitant]
  3. ZENTRAMIN TABLET /OLD FORM/ [Concomitant]
  4. VOLTAREN [Suspect]
     Indication: ARTHRALGIA
     Dosage: 50 MG, ONCE/SINGLE
     Route: 054
     Dates: start: 20031016, end: 20031016

REACTIONS (3)
  - ABDOMINAL PAIN UPPER [None]
  - ANGINA PECTORIS [None]
  - HEART RATE INCREASED [None]
